FAERS Safety Report 9714518 (Version 2)
Quarter: 2013Q4

REPORT INFORMATION
  Report Type: Spontaneous
  Country: TR (occurrence: TR)
  Receive Date: 20131126
  Receipt Date: 20131126
  Transmission Date: 20140711
  Serious: Yes (Death)
  Sender: FDA-Public Use
  Company Number: TR-CELGENEUS-161-21880-12120058

PATIENT
  Age: 56 Year
  Sex: Female
  Weight: 55 kg

DRUGS (10)
  1. REVLIMID [Suspect]
     Indication: PLASMA CELL MYELOMA
     Dosage: 25 MILLIGRAM
     Route: 048
     Dates: start: 20120815, end: 20121008
  2. ELOTUZUMAB [Suspect]
     Indication: PLASMA CELL MYELOMA
     Route: 065
  3. DEXAMETHASONE [Suspect]
     Indication: PLASMA CELL MYELOMA
     Dosage: 40 MILLIGRAM
     Route: 048
     Dates: start: 20120815, end: 20121001
  4. TRANSAMIN [Concomitant]
     Indication: ADVERSE EVENT
     Route: 065
     Dates: start: 20120918, end: 20121001
  5. RED BLOOD CELL TRANSFUSION [Concomitant]
     Indication: ADVERSE EVENT
     Route: 065
     Dates: start: 20120912, end: 20120912
  6. RED BLOOD CELL TRANSFUSION [Concomitant]
     Route: 065
     Dates: start: 20121001, end: 20121001
  7. PLATELETS TRANSFUSION [Concomitant]
     Indication: ADVERSE EVENT
     Route: 065
     Dates: start: 20120918, end: 20120918
  8. PLATELETS TRANSFUSION [Concomitant]
     Route: 065
     Dates: start: 20120927, end: 20120927
  9. PLATELETS TRANSFUSION [Concomitant]
     Route: 065
     Dates: start: 20121001, end: 20121001
  10. KLAMOKS [Concomitant]
     Indication: ADVERSE EVENT
     Route: 065
     Dates: start: 20120926, end: 20121001

REACTIONS (1)
  - Plasma cell myeloma [Fatal]
